FAERS Safety Report 4826117-5 (Version None)
Quarter: 2005Q4

REPORT INFORMATION
  Report Type: 
  Country: None (occurrence: None)
  Receive Date: 20051109
  Receipt Date: 20051102
  Transmission Date: 20060501
  Serious: Yes (Death)
  Sender: FDA-Public Use
  Company Number: 005954

PATIENT
  Age: 58 Year
  Sex: Male
  Weight: 67.6 kg

DRUGS (8)
  1. WARFARIN SODIUM [Suspect]
     Indication: THROMBOSIS
     Dosage: 2 MG, QOD, ORAL
     Route: 048
     Dates: start: 20050801, end: 20050906
  2. WARFARIN SODIUM [Suspect]
     Indication: THROMBOSIS
     Dosage: 1.5 MG, QOD, ORAL
     Route: 048
     Dates: start: 20050801, end: 20050906
  3. SULFAMETHOXAZOLE + TRIMETHOPRIM [Concomitant]
  4. ACYCLOVIR [Concomitant]
  5. FOLIC ACID [Concomitant]
  6. MULTIVITAMINS (ERGOCALCIFEROL, PANTHENOL, NICOTINAMIDE, RIBOFLAVIN, TH [Concomitant]
  7. MAGNESIUM (MAGNESIUM) [Concomitant]
  8. PROGRAF [Concomitant]

REACTIONS (4)
  - BLUE TOE SYNDROME [None]
  - MULTI-ORGAN FAILURE [None]
  - SEPSIS [None]
  - THROMBOCYTOPENIA [None]
